FAERS Safety Report 20790484 (Version 2)
Quarter: 2022Q3

REPORT INFORMATION
  Report Type: Spontaneous
  Country: FR (occurrence: FR)
  Receive Date: 20220505
  Receipt Date: 20220728
  Transmission Date: 20221027
  Serious: Yes (Hospitalization, Other)
  Sender: FDA-Public Use
  Company Number: None

PATIENT
  Age: 77 Year
  Sex: Male
  Weight: 76 kg

DRUGS (7)
  1. AMOXICILLIN [Suspect]
     Active Substance: AMOXICILLIN
     Indication: Antibiotic prophylaxis
     Dosage: DURATION : 1 DAY
     Dates: start: 20220323, end: 20220324
  2. AMOXICILLIN [Suspect]
     Active Substance: AMOXICILLIN
     Dosage: UNIT DOSE: 1 GM, FREQUENCY TIME : 8 HRS, DURATION : 4 DAYS
     Dates: start: 20220318, end: 20220322
  3. AMOXICILLIN [Suspect]
     Active Substance: AMOXICILLIN
     Dosage: DURATION : 4 DAYS
     Dates: start: 20220325, end: 20220328
  4. CABOMETYX [Suspect]
     Active Substance: CABOZANTINIB S-MALATE
     Indication: Renal cancer metastatic
     Dosage: UNIT DOSE: 40 MG, FREQUENCY TIME : 1 DAY, DURATION : 37 DAYS
     Dates: start: 20220214, end: 20220323
  5. CABOMETYX [Suspect]
     Active Substance: CABOZANTINIB S-MALATE
     Dosage: UNIT DOSE: 40 MG, FREQUENCY TIME : 1 DAY, DURATION : 10 DAY
     Dates: start: 20220411, end: 20220421
  6. CABOMETYX 20 mg, comprime pellicule [Concomitant]
     Indication: Renal cancer metastatic
     Dosage: CABOMETYX 20 MG FILM-COATED TABLETS, FREQUENCY TIME : 1 DAY
     Dates: start: 20220524
  7. CLAVULANIC ACID [Concomitant]
     Active Substance: CLAVULANIC ACID
     Indication: Antibiotic therapy
     Dosage: ACIDE CLAVULANIQUE, DURATION : 1 DAY
     Dates: start: 20220323, end: 20220324

REACTIONS (2)
  - Hepatitis cholestatic [Recovering/Resolving]
  - Agranulocytosis [Recovered/Resolved]

NARRATIVE: CASE EVENT DATE: 20220322
